FAERS Safety Report 20320602 (Version 2)
Quarter: 2022Q1

REPORT INFORMATION
  Report Type: Spontaneous
  Country: IN (occurrence: IN)
  Receive Date: 20220111
  Receipt Date: 20220311
  Transmission Date: 20220423
  Serious: Yes (Death, Other)
  Sender: FDA-Public Use
  Company Number: IN-SUN PHARMACEUTICAL INDUSTRIES LTD-2021R1-322493

PATIENT
  Age: 18 Year
  Sex: Female

DRUGS (2)
  1. METHOTREXATE [Suspect]
     Active Substance: METHOTREXATE
     Indication: Ovarian germ cell cancer
     Dosage: 30 MILLIGRAM/SQ. METER/ROUNDED TO 50 MG/ WEEKLY
     Route: 065
  2. VINBLASTINE [Suspect]
     Active Substance: VINBLASTINE
     Indication: Ovarian germ cell cancer
     Dosage: 6 MILLIGRAM/SQ. METER/ROUNDED TO 10 MG/ WEEKLY
     Route: 065

REACTIONS (4)
  - Disease progression [Fatal]
  - Neutropenia [Unknown]
  - Diarrhoea [Unknown]
  - Mouth ulceration [Unknown]
